FAERS Safety Report 6057362-1 (Version None)
Quarter: 2009Q1

REPORT INFORMATION
  Report Type: 
  Country: None (occurrence: None)
  Receive Date: 20090129
  Receipt Date: 20080616
  Transmission Date: 20090719
  Serious: No
  Sender: FDA-Public Use
  Company Number: US-BRISTOL-MYERS SQUIBB COMPANY-14229363

PATIENT
  Age: 44 Year
  Sex: Female
  Weight: 59 kg

DRUGS (1)
  1. CEFZIL [Suspect]
     Indication: STAPHYLOCOCCAL INFECTION
     Dates: start: 20080303

REACTIONS (1)
  - VOMITING [None]
